FAERS Safety Report 21238416 (Version 1)
Quarter: 2022Q3

REPORT INFORMATION
  Report Type: Spontaneous
  Country: US (occurrence: None)
  Receive Date: 20220821
  Receipt Date: 20220821
  Transmission Date: 20221027
  Serious: Yes (Other)
  Sender: FDA-Public Use
  Company Number: None

PATIENT
  Age: 31 Year
  Sex: Female
  Weight: 62.6 kg

DRUGS (2)
  1. MIRENA [Suspect]
     Active Substance: LEVONORGESTREL
     Indication: Product used for unknown indication
  2. Currently have paraguard IUD [Concomitant]

REACTIONS (15)
  - Depression [None]
  - Anxiety [None]
  - Urticaria [None]
  - Pruritus [None]
  - Loss of libido [None]
  - Anorgasmia [None]
  - Libido decreased [None]
  - Crying [None]
  - Emotional distress [None]
  - Insomnia [None]
  - Pain [None]
  - Suppressed lactation [None]
  - Muscle spasms [None]
  - Fatigue [None]
  - Post procedural discomfort [None]

NARRATIVE: CASE EVENT DATE: 20220110
